FAERS Safety Report 8776957 (Version 1)
Quarter: 2012Q4

REPORT INFORMATION
  Report Type: 
  Country: US (occurrence: US)
  Receive Date: 20120911
  Receipt Date: 20120911
  Transmission Date: 20130627
  Serious: Yes (Other)
  Sender: FDA-Public Use
  Company Number: US-GLAXOSMITHKLINE-A0992577A

PATIENT
  Age: 58 Year
  Sex: Male

DRUGS (6)
  1. FLOVENT [Suspect]
     Indication: ASTHMA
     Dosage: 2PUFF Twice per day
     Route: 055
     Dates: start: 1992
  2. SEROQUEL [Concomitant]
  3. SINGULAIR [Concomitant]
  4. LEVOTHYROXINE [Concomitant]
  5. NASONEX [Concomitant]
  6. AEROCHAMBER [Concomitant]

REACTIONS (2)
  - Asthma [Recovered/Resolved]
  - Ill-defined disorder [Recovered/Resolved]
